FAERS Safety Report 18510059 (Version 1)
Quarter: 2020Q4

REPORT INFORMATION
  Report Type: Spontaneous
  Country: US (occurrence: US)
  Receive Date: 20201117
  Receipt Date: 20201117
  Transmission Date: 20210114
  Serious: No
  Sender: FDA-Public Use
  Company Number: US-AMGEN INC.-USASP2020184090

PATIENT
  Age: 26 Year

DRUGS (1)
  1. AIMOVIG [Suspect]
     Active Substance: ERENUMAB-AOOE
     Indication: PRODUCT USED FOR UNKNOWN INDICATION
     Dosage: UNK
     Route: 065
     Dates: end: 201911

REACTIONS (9)
  - Alopecia [Not Recovered/Not Resolved]
  - Pyrexia [Unknown]
  - Night sweats [Not Recovered/Not Resolved]
  - Hepatic enzyme increased [Unknown]
  - Depression [Unknown]
  - Pain [Not Recovered/Not Resolved]
  - Temperature regulation disorder [Unknown]
  - Quality of life decreased [Not Recovered/Not Resolved]
  - Lymphadenopathy [Recovered/Resolved]

NARRATIVE: CASE EVENT DATE: 2019
